FAERS Safety Report 18547045 (Version 1)
Quarter: 2020Q4

REPORT INFORMATION
  Report Type: Spontaneous
  Country: US (occurrence: US)
  Receive Date: 20201125
  Receipt Date: 20201125
  Transmission Date: 20210114
  Serious: No
  Sender: FDA-Public Use
  Company Number: US-BEH-2020125286

PATIENT
  Sex: Female

DRUGS (1)
  1. HIZENTRA [Suspect]
     Active Substance: HUMAN IMMUNOGLOBULIN G
     Dosage: 5 GRAM (ONLY GOT 50% OF THE HIZENTRA INFUSION) , TOT
     Route: 065
     Dates: start: 20201119

REACTIONS (3)
  - Incorrect dose administered [Unknown]
  - Infusion site extravasation [Unknown]
  - No adverse event [Unknown]

NARRATIVE: CASE EVENT DATE: 20201119
